FAERS Safety Report 18507108 (Version 7)
Quarter: 2022Q4

REPORT INFORMATION
  Report Type: Spontaneous
  Country: US (occurrence: US)
  Receive Date: 20201116
  Receipt Date: 20221221
  Transmission Date: 20230112
  Serious: Yes (Other)
  Sender: FDA-Public Use
  Company Number: US-PFIZER INC-2020447736

PATIENT
  Age: 48 Year
  Sex: Female
  Weight: 90.703 kg

DRUGS (9)
  1. SOMAVERT [Suspect]
     Active Substance: PEGVISOMANT
     Indication: Acromegaly
     Dosage: 30 MG (4 TIMES PER WEEK)
     Route: 058
     Dates: start: 20201026
  2. SOMAVERT [Suspect]
     Active Substance: PEGVISOMANT
     Dosage: 20 MG, ALTERNATE DAY (EVERY OTHER DAY)
     Route: 058
     Dates: start: 20201026
  3. SOMAVERT [Suspect]
     Active Substance: PEGVISOMANT
     Dosage: 20 MG, ALTERNATE DAY (EVERY OTHER DAY)
     Route: 058
     Dates: start: 20201026
  4. SOMAVERT [Suspect]
     Active Substance: PEGVISOMANT
     Dosage: 20 MG, ALTERNATE DAY (EVERY OTHER DAY)
     Dates: start: 202010, end: 20201216
  5. SOMAVERT [Suspect]
     Active Substance: PEGVISOMANT
     Dosage: 20 MG, DAILY
     Dates: start: 20201217, end: 20201224
  6. SOMAVERT [Suspect]
     Active Substance: PEGVISOMANT
     Dosage: 30 MG, ALTERNATE DAY
     Route: 058
     Dates: start: 20201225
  7. SOMAVERT [Suspect]
     Active Substance: PEGVISOMANT
     Dosage: 30 MG, ALTERNATE DAY
     Route: 058
     Dates: start: 202012
  8. AMLODIPINE [Concomitant]
     Active Substance: AMLODIPINE BESYLATE
     Indication: Hypertension
     Dosage: 5 MG, DAILY
  9. ASPIRIN [Concomitant]
     Active Substance: ASPIRIN
     Dosage: 81 MG, DAILY

REACTIONS (20)
  - Pituitary tumour [Unknown]
  - Therapeutic response unexpected [Unknown]
  - Off label use [Unknown]
  - Intentional product misuse [Unknown]
  - Pruritus [Unknown]
  - Urticaria [Recovered/Resolved]
  - Injection site pain [Unknown]
  - Skin irritation [Unknown]
  - Fatigue [Recovering/Resolving]
  - Arthralgia [Unknown]
  - Constipation [Unknown]
  - Decreased appetite [Unknown]
  - Headache [Unknown]
  - Pain in extremity [Unknown]
  - Sinus headache [Unknown]
  - Weight increased [Unknown]
  - Heavy menstrual bleeding [Unknown]
  - Ovarian cyst [Unknown]
  - Uterine leiomyoma [Unknown]
  - Blood iron decreased [Unknown]

NARRATIVE: CASE EVENT DATE: 20200101
